FAERS Safety Report 10035286 (Version 1)
Quarter: 2014Q1

REPORT INFORMATION
  Report Type: Spontaneous
  Country: US (occurrence: None)
  Receive Date: 20140306
  Receipt Date: 20140306
  Transmission Date: 20141002
  Serious: Yes (Hospitalization)
  Sender: FDA-Public Use
  Company Number: 163-21880-13011439

PATIENT
  Age: 60 Year
  Sex: Male

DRUGS (12)
  1. REVLIMID [Suspect]
     Indication: PLASMA CELL MYELOMA
     Dosage: 5 MG, 3 IN 1 WK, PO SEP / 2012 - ONGOING
     Route: 048
     Dates: start: 201209
  2. ACETAMINOPHEN [Concomitant]
  3. ACYCLOVIR [Concomitant]
  4. ASPIRIN (ACETYLSALIC ACID) [Concomitant]
  5. CEFTRIAXONE [Concomitant]
  6. CLONIDINE [Concomitant]
  7. FUROSEMIDE [Concomitant]
  8. HYDROCODONE/APAP/ (VICODIN) [Concomitant]
  9. NITROGLYCERIN (GLYCERYL TRINITRATE) SPRAY [Concomitant]
  10. SEVELAMER [Concomitant]
  11. INSULIN [Concomitant]
  12. ANTIBOTICS [Concomitant]

REACTIONS (1)
  - Renal failure [None]
